FAERS Safety Report 16411696 (Version 1)
Quarter: 2019Q2

REPORT INFORMATION
  Report Type: Spontaneous
  Country: US (occurrence: US)
  Receive Date: 20190610
  Receipt Date: 20190610
  Transmission Date: 20190711
  Serious: Yes (Death)
  Sender: FDA-Public Use
  Company Number: US-PFIZER INC-2018229540

PATIENT
  Age: 70 Year
  Sex: Male

DRUGS (2)
  1. LYRICA [Suspect]
     Active Substance: PREGABALIN
     Indication: TYPE 2 DIABETES MELLITUS
  2. LYRICA [Suspect]
     Active Substance: PREGABALIN
     Indication: DIABETIC NEPHROPATHY
     Dosage: 50 MG, 2X/DAY

REACTIONS (3)
  - Off label use [Unknown]
  - Death [Fatal]
  - Product use in unapproved indication [Unknown]
